FAERS Safety Report 9391947 (Version 2)
Quarter: 2013Q3

REPORT INFORMATION
  Report Type: Spontaneous
  Country: JP (occurrence: JP)
  Receive Date: 20130709
  Receipt Date: 20130712
  Transmission Date: 20140515
  Serious: Yes (Hospitalization)
  Sender: FDA-Public Use
  Company Number: JP-009507513-1307JPN002539

PATIENT
  Age: 63 Year
  Sex: Male
  Weight: 58 kg

DRUGS (13)
  1. PEGINTRON [Suspect]
     Indication: CHRONIC HEPATITIS C
     Dosage: 1.5 MICROGRAM PER KILOGRAM, QW
     Route: 058
     Dates: start: 20130306, end: 20130327
  2. PEGINTRON [Suspect]
     Dosage: 1.5 MICROGRAM PER KILOGRAM, QW
     Route: 058
     Dates: start: 20130417
  3. REBETOL [Suspect]
     Indication: CHRONIC HEPATITIS C
     Dosage: 600 MG, QD
     Route: 048
     Dates: start: 20130306, end: 20130327
  4. REBETOL [Suspect]
     Dosage: 600 MG, QD
     Route: 048
     Dates: start: 20130411, end: 20130411
  5. REBETOL [Suspect]
     Dosage: 600 MG, QD
     Route: 048
     Dates: start: 20130417
  6. TELAVIC [Suspect]
     Indication: CHRONIC HEPATITIS C
     Dosage: 1500 MG, QD
     Route: 048
     Dates: start: 20130306, end: 20130327
  7. TELAVIC [Suspect]
     Dosage: 1500 MG, QD
     Route: 048
     Dates: start: 20130411, end: 20130411
  8. ZYLORIC [Suspect]
     Dosage: 100 MG, QD
     Route: 048
     Dates: start: 20130308, end: 20130416
  9. LOXONIN [Suspect]
     Dosage: 60 MG, QD, AS NEEDED
     Route: 048
     Dates: start: 20130307
  10. MARZULENE [Suspect]
     Dosage: 0.5 G, QD
     Route: 048
     Dates: start: 20130307
  11. URSO [Concomitant]
     Indication: CHRONIC HEPATITIS C
     Dosage: 100 MG, QD, FORMULATION: POR
     Route: 048
  12. DIOVAN [Concomitant]
     Dosage: 80 MG, QD, FORMULATION: POR
     Route: 048
  13. AMLODIN OD [Concomitant]
     Dosage: 5 MG, QD, FORMULATION: POR
     Route: 048

REACTIONS (1)
  - Pneumonia legionella [Recovered/Resolved]
